FAERS Safety Report 8045459-6 (Version None)
Quarter: 2012Q1

REPORT INFORMATION
  Report Type: 
  Country: None (occurrence: None)
  Receive Date: 20120113
  Receipt Date: 20120106
  Transmission Date: 20120608
  Serious: Yes (Other)
  Sender: FDA-Public Use
  Company Number: US-US-EMD SERONO, INC.-7105656

PATIENT
  Sex: Female

DRUGS (2)
  1. GABAPENTIN [Concomitant]
  2. REBIF [Suspect]
     Indication: MULTIPLE SCLEROSIS
     Dates: start: 20100927

REACTIONS (2)
  - HEPATIC STEATOSIS [None]
  - HEPATIC CIRRHOSIS [None]
